FAERS Safety Report 8784703 (Version 2)
Quarter: 2013Q1

REPORT INFORMATION
  Report Type: Spontaneous
  Country: US (occurrence: US)
  Receive Date: 20120914
  Receipt Date: 20130205
  Transmission Date: 20140127
  Serious: No
  Sender: FDA-Public Use
  Company Number: US-BAYER-2012-093910

PATIENT
  Sex: Female
  Weight: 48 kg

DRUGS (3)
  1. MIRENA [Suspect]
     Indication: CONTRACEPTION
     Dosage: 20 MCG/24HR, CONT
     Route: 015
     Dates: start: 20120905, end: 20120907
  2. MULTIVITAMIN [Concomitant]
     Dosage: UNK UNK, ONCE
  3. VITAMIN B12 (CYANOCOBALAMIN AND DERIVATIVES) [Concomitant]

REACTIONS (1)
  - Presyncope [Recovered/Resolved]
